FAERS Safety Report 23840031 (Version 1)
Quarter: 2024Q2

REPORT INFORMATION
  Report Type: Other
  Country: JP (occurrence: JP)
  Receive Date: 20240510
  Receipt Date: 20240510
  Transmission Date: 20240715
  Serious: Yes (Other)
  Sender: FDA-Public Use
  Company Number: JP-Bion-013029

PATIENT
  Age: 26 Year
  Sex: Female

DRUGS (11)
  1. VALPROIC ACID [Suspect]
     Active Substance: VALPROIC ACID
     Indication: Partial seizures
     Dosage: 1600 MG/DAY
  2. CLOBAZAM [Suspect]
     Active Substance: CLOBAZAM
     Indication: Partial seizures
  3. PHENYTOIN [Concomitant]
     Active Substance: PHENYTOIN
     Indication: Partial seizures
  4. ZONISAMIDE [Concomitant]
     Active Substance: ZONISAMIDE
     Indication: Partial seizures
  5. LEVETIRACETAM [Concomitant]
     Active Substance: LEVETIRACETAM
     Indication: Partial seizures
  6. TOPIRAMATE [Concomitant]
     Active Substance: TOPIRAMATE
     Indication: Partial seizures
  7. RISPERIDONE [Concomitant]
     Active Substance: RISPERIDONE
     Indication: Partial seizures
     Dosage: 2MG/DAY
  8. CHLORPROMAZINE [Concomitant]
     Active Substance: CHLORPROMAZINE
     Indication: Partial seizures
  9. RAMELTEON [Concomitant]
     Active Substance: RAMELTEON
     Indication: Partial seizures
  10. SUVOREXANT [Concomitant]
     Active Substance: SUVOREXANT
     Indication: Partial seizures
  11. QUETIAPINE [Concomitant]
     Active Substance: QUETIAPINE
     Indication: Partial seizures
     Dosage: 225 MG/DAY

REACTIONS (2)
  - Central hypothyroidism [Recovered/Resolved]
  - Drug ineffective [Not Recovered/Not Resolved]
